FAERS Safety Report 26110096 (Version 1)
Quarter: 2025Q4

REPORT INFORMATION
  Report Type: Report from Study
  Country: GB (occurrence: GB)
  Receive Date: 20251201
  Receipt Date: 20251201
  Transmission Date: 20260118
  Serious: Yes (Hospitalization)
  Sender: ABBVIE
  Company Number: GB-ABBVIE-6569149

PATIENT
  Age: 55 Year
  Sex: Female

DRUGS (1)
  1. RINVOQ [Suspect]
     Active Substance: UPADACITINIB
     Indication: Crohn^s disease
     Dosage: STRENGTH: 30MG, DOSE FORM: MODIFIED-RELEASE TABLETS, LAST ADMIN DATE: 2025
     Route: 048
     Dates: start: 20250603

REACTIONS (4)
  - Illness [Unknown]
  - Arthritis [Unknown]
  - Pyrexia [Unknown]
  - Skin disorder [Unknown]

NARRATIVE: CASE EVENT DATE: 20250101
